FAERS Safety Report 7146115-9 (Version None)
Quarter: 2010Q4

REPORT INFORMATION
  Report Type: 
  Country: None (occurrence: None)
  Receive Date: 20101208
  Receipt Date: 20101203
  Transmission Date: 20110411
  Serious: Yes (Life-Threatening, Hospitalization, Disabling, Other)
  Sender: FDA-Public Use
  Company Number: US-MERCK-1006USA02459

PATIENT
  Age: 46 Year
  Sex: Female
  Weight: 133 kg

DRUGS (18)
  1. EMEND [Suspect]
     Indication: PROPHYLAXIS OF NAUSEA AND VOMITING
     Route: 048
     Dates: start: 20100413
  2. EMEND [Suspect]
     Route: 048
  3. EMEND [Suspect]
     Route: 048
  4. EMEND [Suspect]
     Route: 048
     Dates: start: 20100503
  5. TAXOTERE [Suspect]
     Route: 065
     Dates: end: 20100503
  6. CYTOXAN [Concomitant]
     Route: 065
  7. NEULASTA [Concomitant]
     Route: 065
  8. MESNA [Concomitant]
     Route: 065
  9. ATIVAN [Concomitant]
     Route: 065
  10. COMPAZINE [Concomitant]
     Route: 065
  11. SINGULAIR [Concomitant]
     Route: 048
  12. PRILOSEC [Concomitant]
     Route: 065
  13. LOPID [Concomitant]
     Route: 065
  14. ADVAIR [Concomitant]
     Route: 065
  15. LEXAPRO [Concomitant]
     Route: 065
  16. PHENAZOPYRIDINE HCL TAB [Concomitant]
     Route: 065
  17. XANAX [Concomitant]
     Route: 065
  18. PERCOCET [Concomitant]
     Route: 065

REACTIONS (4)
  - ADVERSE EVENT [None]
  - ANGIOEDEMA [None]
  - PRURITUS GENERALISED [None]
  - URTICARIA [None]
